FAERS Safety Report 14929792 (Version 2)
Quarter: 2020Q4

REPORT INFORMATION
  Report Type: Spontaneous
  Country: US (occurrence: US)
  Receive Date: 20180523
  Receipt Date: 20201012
  Transmission Date: 20210113
  Serious: Yes (Disabling, Other)
  Sender: FDA-Public Use
  Company Number: US-TEVA-2018-US-894273

PATIENT
  Age: 55 Year
  Sex: Female
  Weight: 109.8 kg

DRUGS (29)
  1. DOCETAXEL. [Suspect]
     Active Substance: DOCETAXEL
     Indication: BREAST CANCER FEMALE
     Route: 065
     Dates: start: 20150423, end: 20150806
  2. ADRIAMYCIN [Suspect]
     Active Substance: DOXORUBICIN HYDROCHLORIDE
     Dosage: ADMIN: IV PUSH EACH SYRINGE OVER 5 MIN; FREQUENCY: ONCE
     Route: 042
     Dates: start: 20150514, end: 20150514
  3. ADRIAMYCIN [Suspect]
     Active Substance: DOXORUBICIN HYDROCHLORIDE
     Dosage: ADMIN: IV PUSH EACH SYRINGE OVER 5 MIN; FREQUENCY: ONCE
     Route: 042
     Dates: start: 20150716, end: 20150716
  4. ADRIAMYCIN [Suspect]
     Active Substance: DOXORUBICIN HYDROCHLORIDE
     Dosage: ADMIN: IV PUSH EACH SYRINGE OVER 5 MIN; FREQUENCY: ONCE
     Route: 042
     Dates: start: 20150806, end: 20150806
  5. CYTOXAN [Suspect]
     Active Substance: CYCLOPHOSPHAMIDE
     Dosage: 1110 MG IN SODIUM CHLORIDE 0.9 % 305.5 ML CHEMO INFUSION, RATE: 611 ML/H, FREQUENCY: ONCE
     Route: 042
     Dates: start: 20150625, end: 20150625
  6. ATIVAN [Concomitant]
     Active Substance: LORAZEPAM
     Dates: start: 20150422, end: 20150908
  7. COMPAZINE [Concomitant]
     Active Substance: PROCHLORPERAZINE MALEATE
     Dosage: FREQUENCY: Q6H PRN - 30 OCCURRENCES
     Dates: start: 20150422
  8. TAXOTERE [Suspect]
     Active Substance: DOCETAXEL
     Dosage: DOSE: 170MG IN SODIUM CHLORIDE 0.9% 258.5ML CHEMO INFUSION, RATE- 259ML/H; FREQUENCY: ONCE
     Route: 042
     Dates: start: 20150716, end: 20150716
  9. CYTOXAN [Suspect]
     Active Substance: CYCLOPHOSPHAMIDE
     Dosage: 1110 MG IN SODIUM CHLORIDE 0.9 % 305.5 ML CHEMO INFUSION, RATE: 611 ML/H, FREQUENCY: ONCE
     Route: 042
     Dates: start: 20150604, end: 20150604
  10. NEULASTA [Suspect]
     Active Substance: PEGFILGRASTIM
     Dosage: FREQUENCY: ONCE
     Route: 058
     Dates: start: 20150807, end: 20150807
  11. ADRIAMYCIN [Suspect]
     Active Substance: DOXORUBICIN HYDROCHLORIDE
     Dosage: ADMIN: IV PUSH EACH SYRINGE OVER 5 MIN; FREQUENCY: ONCE
     Route: 042
     Dates: start: 20150625, end: 20150625
  12. CYTOXAN [Suspect]
     Active Substance: CYCLOPHOSPHAMIDE
     Dosage: 1110 MG IN SODIUM CHLORIDE 0.9 % 305.5 ML CHEMO INFUSION, RATE: 611 ML/H, FREQUENCY: ONCE
     Route: 042
     Dates: start: 20150806, end: 20150806
  13. NEULASTA [Suspect]
     Active Substance: PEGFILGRASTIM
     Dosage: FREQUENCY: ONCE
     Route: 058
     Dates: start: 20150717, end: 20150717
  14. ZOFRAN [Concomitant]
     Active Substance: ONDANSETRON HYDROCHLORIDE
     Dates: start: 20150422, end: 20150908
  15. TAXOTERE [Suspect]
     Active Substance: DOCETAXEL
     Dosage: DOSE: 170MG IN SODIUM CHLORIDE 0.9% 258.5ML CHEMO INFUSION, RATE- 259ML/H; FREQUENCY: ONCE
     Route: 042
     Dates: start: 20150514, end: 20150514
  16. TAXOTERE [Suspect]
     Active Substance: DOCETAXEL
     Dosage: DOSE: 170MG IN SODIUM CHLORIDE 0.9% 258.5ML CHEMO INFUSION, RATE- 259ML/H; FREQUENCY: ONCE
     Route: 042
     Dates: start: 20150604, end: 20150604
  17. CYTOXAN [Suspect]
     Active Substance: CYCLOPHOSPHAMIDE
     Dosage: 1110 MG IN SODIUM CHLORIDE 0.9 % 305.5 ML CHEMO INFUSION, RATE: 611 ML/H, FREQUENCY: ONCE
     Route: 042
     Dates: start: 20150514, end: 20150514
  18. NEULASTA [Suspect]
     Active Substance: PEGFILGRASTIM
     Dosage: FREQUENCY: ONCE
     Route: 058
     Dates: start: 20150605, end: 20150605
  19. TAXOTERE [Suspect]
     Active Substance: DOCETAXEL
     Dosage: DOSE: 170MG IN SODIUM CHLORIDE 0.9% 258.5ML CHEMO INFUSION, RATE- 259ML/H; FREQUENCY: ONCE
     Route: 042
     Dates: start: 20150806, end: 20150806
  20. CYTOXAN [Suspect]
     Active Substance: CYCLOPHOSPHAMIDE
     Dosage: 1110 MG IN SODIUM CHLORIDE 0.9 % 305.5 ML CHEMO INFUSION, RATE: 611 ML/H, FREQUENCY: ONCE
     Route: 042
     Dates: start: 20150716, end: 20150716
  21. NEULASTA [Suspect]
     Active Substance: PEGFILGRASTIM
     Indication: BREAST CANCER FEMALE
     Dosage: FREQUENCY: ONCE
     Route: 058
     Dates: start: 20150424, end: 20150424
  22. NEULASTA [Suspect]
     Active Substance: PEGFILGRASTIM
     Dosage: FREQUENCY: ONCE
     Route: 058
     Dates: start: 20150515, end: 20150515
  23. TAXOTERE [Suspect]
     Active Substance: DOCETAXEL
     Indication: BREAST CANCER FEMALE
     Dosage: DOSE: 170MG IN SODIUM CHLORIDE 0.9% 258.5ML CHEMO INFUSION, RATE-150ML/H; FREQUENCY: ONCE
     Route: 042
     Dates: start: 20150423, end: 20150423
  24. ADRIAMYCIN [Suspect]
     Active Substance: DOXORUBICIN HYDROCHLORIDE
     Indication: BREAST CANCER FEMALE
     Dosage: ADMIN: IV PUSH EACH SYRINGE OVER 5 MIN; FREQUENCY: ONCE
     Route: 042
     Dates: start: 20150423, end: 20150423
  25. TAXOTERE [Suspect]
     Active Substance: DOCETAXEL
     Dosage: DOSE: 170MG IN SODIUM CHLORIDE 0.9% 258.5ML CHEMO INFUSION, RATE- 259ML/H; FREQUENCY: ONCE
     Route: 042
     Dates: start: 20150625, end: 20150625
  26. ADRIAMYCIN [Suspect]
     Active Substance: DOXORUBICIN HYDROCHLORIDE
     Dosage: ADMIN: IV PUSH EACH SYRINGE OVER 5 MIN; FREQUENCY: ONCE
     Route: 042
     Dates: start: 20150604, end: 20150604
  27. CYTOXAN [Suspect]
     Active Substance: CYCLOPHOSPHAMIDE
     Indication: BREAST CANCER FEMALE
     Dosage: 1110 MG IN SODIUM CHLORIDE 0.9 % 305.5 ML CHEMO INFUSION, RATE: 611 ML/H, FREQUENCY: ONCE
     Route: 042
     Dates: start: 20150423, end: 20150423
  28. NEULASTA [Suspect]
     Active Substance: PEGFILGRASTIM
     Dosage: FREQUENCY: ONCE
     Route: 058
     Dates: start: 20150626, end: 20150626
  29. DECADRON [Concomitant]
     Active Substance: DEXAMETHASONE
     Dosage: 8 MILLIGRAM DAILY; TAKE 8MG (2 X 4MG TABS) BY MOUTH AT AM + PM 1 DAY BEFORE CHEMO
     Route: 048
     Dates: start: 20150422, end: 20150825

REACTIONS (14)
  - Madarosis [Unknown]
  - Musculoskeletal pain [Recovering/Resolving]
  - Dehydration [Recovered/Resolved]
  - Alopecia [Unknown]
  - Neuropathy peripheral [Not Recovered/Not Resolved]
  - Hair colour changes [Unknown]
  - Fatigue [Recovering/Resolving]
  - Vomiting [Recovering/Resolving]
  - Hair texture abnormal [Unknown]
  - Nausea [Recovered/Resolved]
  - Diarrhoea [Recovered/Resolved]
  - Hypotension [Recovered/Resolved]
  - Arthralgia [Recovering/Resolving]
  - Joint swelling [Unknown]

NARRATIVE: CASE EVENT DATE: 2015
